FAERS Safety Report 8402655-3 (Version None)
Quarter: 2012Q2

REPORT INFORMATION
  Report Type: 
  Country: None (occurrence: None)
  Receive Date: 20120323
  Receipt Date: 20110628
  Transmission Date: 20120825
  Serious: Yes (Hospitalization)
  Sender: FDA-Public Use
  Company Number: 163-21880-11050200

PATIENT
  Age: 69 Year
  Sex: Female

DRUGS (1)
  1. REVLIMID [Suspect]
     Indication: MULTIPLE MYELOMA
     Dosage: 25 MG, DAILY FOR 21 DAYS OF 28 DAYS, PO
     Route: 048
     Dates: start: 20110405

REACTIONS (7)
  - PYREXIA [None]
  - VOMITING [None]
  - CONSTIPATION [None]
  - RASH [None]
  - GASTROENTERITIS VIRAL [None]
  - DIARRHOEA [None]
  - NAUSEA [None]
